FAERS Safety Report 8827714 (Version 2)
Quarter: 2012Q4

REPORT INFORMATION
  Report Type: 
  Country: US (occurrence: US)
  Receive Date: 20121008
  Receipt Date: 20121029
  Transmission Date: 20130627
  Serious: No
  Sender: FDA-Public Use
  Company Number: US-PFIZER INC-2012244382

PATIENT
  Age: 64 Year
  Sex: Female
  Weight: 59.4 kg

DRUGS (5)
  1. PREMARIN [Suspect]
     Indication: HOT FLASHES
     Dosage: 0.6 mg, 1x/day
     Route: 048
  2. PREMARIN [Suspect]
     Dosage: 0.9 mg, 1x/day
     Route: 048
  3. PREMARIN [Suspect]
     Dosage: 0.12 mg, 1x/day
     Route: 048
  4. PREMARIN [Suspect]
     Dosage: UNK
     Route: 048
  5. BABY ASPIRIN [Concomitant]
     Indication: CARDIAC DISORDER NOS
     Dosage: 81 mg, UNK

REACTIONS (2)
  - Drug ineffective [Unknown]
  - Stress [Not Recovered/Not Resolved]
